FAERS Safety Report 6495898-X (Version None)
Quarter: 2009Q4

REPORT INFORMATION
  Report Type: 
  Country: None (occurrence: None)
  Receive Date: 20091214
  Receipt Date: 20090826
  Transmission Date: 20100525
  Serious: Yes (Death)
  Sender: FDA-Public Use
  Company Number: US-BRISTOL-MYERS SQUIBB COMPANY-14755532

PATIENT
  Sex: Female

DRUGS (3)
  1. ABILIFY [Suspect]
     Dates: start: 20090801
  2. XANAX [Concomitant]
  3. OPIATE SUBSTANCES [Concomitant]

REACTIONS (2)
  - AKATHISIA [None]
  - COMPLETED SUICIDE [None]
